FAERS Safety Report 10563760 (Version 1)
Quarter: 2014Q4

REPORT INFORMATION
  Report Type: Spontaneous
  Country: US (occurrence: US)
  Receive Date: 20141104
  Receipt Date: 20141104
  Transmission Date: 20150529
  Serious: No
  Sender: FDA-Public Use
  Company Number: US-GLAXOSMITHKLINE-US2014GSK015919

PATIENT
  Sex: Female

DRUGS (11)
  1. HUMIRA [Concomitant]
     Active Substance: ADALIMUMAB
  2. ZOLOFT [Concomitant]
     Active Substance: SERTRALINE HYDROCHLORIDE
  3. MUPIROCIN OINTMENT [Concomitant]
     Active Substance: MUPIROCIN
  4. TOPAMAX [Concomitant]
     Active Substance: TOPIRAMATE
  5. ALEVE [Concomitant]
     Active Substance: NAPROXEN SODIUM
  6. GABAPENTIN. [Concomitant]
     Active Substance: GABAPENTIN
  7. TRIAMCINOLONE [Concomitant]
     Active Substance: TRIAMCINOLONE
  8. IMITREX [Suspect]
     Active Substance: SUMATRIPTAN\SUMATRIPTAN SUCCINATE
     Indication: MIGRAINE
     Dosage: 0.5 ML, PRN
     Route: 058
  9. DIAZEPAM. [Concomitant]
     Active Substance: DIAZEPAM
  10. VESICARE [Concomitant]
     Active Substance: SOLIFENACIN SUCCINATE
  11. FIORICET [Concomitant]
     Active Substance: ACETAMINOPHEN\BUTALBITAL\CAFFEINE

REACTIONS (1)
  - Drug ineffective [Unknown]
